FAERS Safety Report 7546670-0 (Version None)
Quarter: 2011Q2

REPORT INFORMATION
  Report Type: 
  Country: None (occurrence: None)
  Receive Date: 20110614
  Receipt Date: 20110602
  Transmission Date: 20111010
  Serious: Yes (Life-Threatening, Hospitalization)
  Sender: FDA-Public Use
  Company Number: GB-ASTRAZENECA-2011SE35787

PATIENT
  Age: 28 Year
  Sex: Female

DRUGS (4)
  1. RANITIDINE [Concomitant]
     Indication: ASPIRATION
     Route: 048
     Dates: start: 20110530, end: 20110530
  2. FENTANYL [Suspect]
     Indication: ANALGESIC THERAPY
     Route: 008
     Dates: start: 20110530, end: 20110530
  3. HARTMANNS [Concomitant]
     Indication: DEHYDRATION
     Route: 042
     Dates: start: 20110530, end: 20110530
  4. BUPIVACAINE HCL [Suspect]
     Indication: ANALGESIC THERAPY
     Route: 008
     Dates: start: 20110530, end: 20110530

REACTIONS (4)
  - DRUG EXPOSURE DURING PREGNANCY [None]
  - PULSE ABSENT [None]
  - APNOEA [None]
  - UNRESPONSIVE TO STIMULI [None]
